FAERS Safety Report 7444929-9 (Version None)
Quarter: 2011Q2

REPORT INFORMATION
  Report Type: 
  Country: None (occurrence: None)
  Receive Date: 20110429
  Receipt Date: 20110420
  Transmission Date: 20111010
  Serious: Yes (Hospitalization)
  Sender: FDA-Public Use
  Company Number: PHHY2011US34235

PATIENT
  Sex: Male
  Weight: 98.866 kg

DRUGS (1)
  1. GILENYA [Suspect]
     Dosage: 0.5 MG, QD
     Route: 048
     Dates: start: 20110408, end: 20110408

REACTIONS (5)
  - HYPOTENSION [None]
  - FACE OEDEMA [None]
  - VOMITING [None]
  - CHEST PAIN [None]
  - HEADACHE [None]
